FAERS Safety Report 9961618 (Version 2)
Quarter: 2014Q1

REPORT INFORMATION
  Report Type: Report from Study
  Country: US (occurrence: US)
  Receive Date: 20140305
  Receipt Date: 20140305
  Transmission Date: 20141002
  Serious: Yes (Hospitalization)
  Sender: FDA-Public Use
  Company Number: US-ABBVIE-13P-163-1109483-00

PATIENT
  Age: 64 Year
  Sex: Female

DRUGS (6)
  1. HUMIRA [Suspect]
     Indication: CROHN^S DISEASE
     Route: 058
     Dates: start: 201305, end: 20130601
  2. LISINOPRIL [Concomitant]
     Indication: HYPERTENSION
  3. TOPROL [Concomitant]
     Indication: HYPERTENSION
  4. TOPROL [Concomitant]
     Indication: HYPERTENSION
     Dosage: WHEN I FEEL I NEED IT
  5. VITAMIN D [Concomitant]
     Indication: PRODUCT USED FOR UNKNOWN INDICATION
  6. CALCIUM [Concomitant]
     Indication: PRODUCT USED FOR UNKNOWN INDICATION

REACTIONS (2)
  - Platelet count decreased [Recovering/Resolving]
  - Thrombocytopenia [Unknown]
